FAERS Safety Report 4973225-4 (Version None)
Quarter: 2006Q2

REPORT INFORMATION
  Report Type: 
  Country: None (occurrence: None)
  Receive Date: 20060410
  Receipt Date: 20060328
  Transmission Date: 20061013
  Serious: Yes (Hospitalization, Other)
  Sender: FDA-Public Use
  Company Number: 2006043427

PATIENT
  Age: 58 Year
  Sex: Male
  Weight: 92.0802 kg

DRUGS (12)
  1. GLIPIZIDE [Suspect]
     Indication: DIABETES MELLITUS NON-INSULIN-DEPENDENT
     Dosage: 10 MG (10 MG, 1 IN 1 D)
     Dates: start: 19960101
  2. TIOTROPIUM BROMIDE (TIOTROPIUM BROMIDE) [Concomitant]
  3. CETIRIZINE (CETIRIZINE) [Concomitant]
  4. RANITIDINE [Concomitant]
  5. ADVAIR DISKUS 100/50 [Concomitant]
  6. MUCINEX (GUAIFENESIN) [Concomitant]
  7. ALBUTEROL [Concomitant]
  8. MONTELUKAST (MONTELUKAST) [Concomitant]
  9. METFORMIN HCL [Concomitant]
  10. AMLODIPINE [Concomitant]
  11. HYDROCHLOROTHIAZIDE [Concomitant]
  12. VALSARTAN [Concomitant]

REACTIONS (1)
  - CEREBROVASCULAR ACCIDENT [None]
